FAERS Safety Report 6038458-7 (Version None)
Quarter: 2009Q1

REPORT INFORMATION
  Report Type: 
  Country: None (occurrence: None)
  Receive Date: 20090115
  Receipt Date: 20090106
  Transmission Date: 20090719
  Serious: Yes (Other)
  Sender: FDA-Public Use
  Company Number: GB-JNJFOC-20090101303

PATIENT
  Sex: Female

DRUGS (6)
  1. REMICADE [Suspect]
     Route: 042
  2. REMICADE [Suspect]
     Indication: RHEUMATOID ARTHRITIS
     Route: 042
  3. ARTHROTEC [Concomitant]
  4. METHOTREXATE [Concomitant]
     Route: 048
  5. PREDNISOLONE [Concomitant]
     Route: 050
  6. SULFASALAZINE [Concomitant]
     Route: 048

REACTIONS (1)
  - LUNG NEOPLASM MALIGNANT [None]
